FAERS Safety Report 22754582 (Version 3)
Quarter: 2024Q4

REPORT INFORMATION
  Report Type: Other
  Country: JP (occurrence: JP)
  Receive Date: 20230727
  Receipt Date: 20241017
  Transmission Date: 20250115
  Serious: Yes (Life-Threatening, Hospitalization, Other)
  Sender: EMD SERONO INC
  Company Number: JP-Merck Healthcare KGaA-2023463240

PATIENT
  Age: 59 Year
  Sex: Female
  Weight: 61 kg

DRUGS (9)
  1. METGLUCO [Suspect]
     Active Substance: METFORMIN HYDROCHLORIDE
     Indication: Type 2 diabetes mellitus
     Dosage: METFORMIN HYDROCHLORIDE 250 MG 6 TABLETS (AFTER EACH MEAL)
     Route: 048
  2. LINAGLIPTIN [Concomitant]
     Active Substance: LINAGLIPTIN
     Indication: Product used for unknown indication
     Dosage: AFTER BREAKFAST
  3. VALPROATE SODIUM [Concomitant]
     Active Substance: VALPROATE SODIUM
     Indication: Product used for unknown indication
     Dosage: 3 TABLETS (2 TABLETS AFTER BREAKFAST AND 1 TABLET AFTER SUPPER),
  4. ROSUVASTATIN CALCIUM [Concomitant]
     Active Substance: ROSUVASTATIN CALCIUM
     Indication: Product used for unknown indication
     Dosage: AFTER BREAKFAST
  5. TELMISARTAN [Concomitant]
     Active Substance: TELMISARTAN
     Indication: Product used for unknown indication
     Dosage: AFTER BREAKFAST
  6. FEBUXOSTAT [Concomitant]
     Active Substance: FEBUXOSTAT
     Indication: Product used for unknown indication
     Dosage: AFTER BREAKFAST
  7. LOXOPROFEN SODIUM [Concomitant]
     Active Substance: LOXOPROFEN SODIUM
     Indication: Product used for unknown indication
     Dosage: LOXOPROFEN SODIUM HYDRATE 60 MG 1 TABLET (AS NEEDED)
  8. ISOXSUPRINE HYDROCHLORIDE [Concomitant]
     Active Substance: ISOXSUPRINE HYDROCHLORIDE
     Indication: Product used for unknown indication
     Dosage: AFTER BREAKFAST AND SUPPER
  9. TOCOPHERYL NICOTINATE [Concomitant]
     Active Substance: TOCOPHERYL NICOTINATE, D-.ALPHA.
     Indication: Product used for unknown indication
     Dosage: AFTER BREAKFAST AND SUPPER

REACTIONS (3)
  - Acute kidney injury [Recovered/Resolved]
  - Campylobacter gastroenteritis [Recovering/Resolving]
  - Lactic acidosis [Recovered/Resolved]
